FAERS Safety Report 22613204 (Version 2)
Quarter: 2023Q2

REPORT INFORMATION
  Report Type: Spontaneous
  Country: JP (occurrence: JP)
  Receive Date: 20230618
  Receipt Date: 20230628
  Transmission Date: 20230722
  Serious: Yes (Other)
  Sender: FDA-Public Use
  Company Number: JP-MSD-M2023-23021

PATIENT
  Age: 54 Year
  Sex: Female

DRUGS (1)
  1. KEYTRUDA [Suspect]
     Active Substance: PEMBROLIZUMAB
     Indication: Triple negative breast cancer
     Dosage: 200 MILLIGRAM, Q3W
     Route: 041
     Dates: start: 202210

REACTIONS (7)
  - Neuropathy peripheral [Unknown]
  - COVID-19 [Unknown]
  - Enanthema [Unknown]
  - Malaise [Unknown]
  - Arthralgia [Unknown]
  - Nausea [Unknown]
  - Rash [Unknown]
